FAERS Safety Report 19015099 (Version 1)
Quarter: 2021Q1

REPORT INFORMATION
  Report Type: Spontaneous
  Country: IN (occurrence: IN)
  Receive Date: 20210317
  Receipt Date: 20210317
  Transmission Date: 20210420
  Serious: Yes (Death, Life-Threatening, Hospitalization, Other)
  Sender: FDA-Public Use
  Company Number: IN-HORMOSAN PHARMA GMBH-2021-03051

PATIENT
  Age: 17 Year
  Sex: Male

DRUGS (7)
  1. METRONIDAZOLE. [Suspect]
     Active Substance: METRONIDAZOLE
     Indication: METACHROMATIC LEUKODYSTROPHY
     Dosage: 500 MILLIGRAM
     Route: 065
  2. DERIPHYLLIN [Suspect]
     Active Substance: ETOFYLLINE\THEOPHYLLINE
     Indication: METACHROMATIC LEUKODYSTROPHY
     Dosage: 2 MILLILITER, 2 CC
     Route: 065
  3. CLONAZEPAM. [Suspect]
     Active Substance: CLONAZEPAM
     Indication: METACHROMATIC LEUKODYSTROPHY
     Dosage: UNK
     Route: 065
  4. CEFOTAXIME INJECTION [Suspect]
     Active Substance: CEFOTAXIME SODIUM
     Indication: METACHROMATIC LEUKODYSTROPHY
     Dosage: 1 GRAM
     Route: 065
  5. LEVETIRACETAM TABLETS [Suspect]
     Active Substance: LEVETIRACETAM
     Indication: METACHROMATIC LEUKODYSTROPHY
     Dosage: UNK
     Route: 065
  6. DEXAMETHASONE INJECTION [Suspect]
     Active Substance: DEXAMETHASONE
     Indication: METACHROMATIC LEUKODYSTROPHY
     Dosage: UNK
     Route: 065
  7. RANITIDINE. [Suspect]
     Active Substance: RANITIDINE
     Indication: METACHROMATIC LEUKODYSTROPHY
     Dosage: 50 MILLIGRAM, INJECTION
     Route: 065

REACTIONS (3)
  - Respiratory failure [Fatal]
  - Drug ineffective [Fatal]
  - Condition aggravated [Fatal]
